FAERS Safety Report 19934909 (Version 7)
Quarter: 2021Q4

REPORT INFORMATION
  Report Type: Report from Study
  Country: US (occurrence: US)
  Receive Date: 20211008
  Receipt Date: 20211229
  Transmission Date: 20220304
  Serious: Yes (Hospitalization, Other)
  Sender: FDA-Public Use
  Company Number: NVSC2021US229743

PATIENT
  Age: 7 Month
  Sex: Female
  Weight: 8.89 kg

DRUGS (19)
  1. ZOLGENSMA [Suspect]
     Active Substance: ONASEMNOGENE ABEPARVOVEC-XIOI
     Indication: Spinal muscular atrophy
     Dosage: 44 ML (1.1 X E14VG/KG)
     Route: 042
     Dates: start: 20210512, end: 20210512
  2. PREDNISOLONE [Concomitant]
     Active Substance: PREDNISOLONE
     Indication: Product used for unknown indication
     Dosage: 7.5 MG
     Route: 065
     Dates: start: 20210510, end: 20210617
  3. PREDNISOLONE [Concomitant]
     Active Substance: PREDNISOLONE
     Dosage: 6 MG
     Route: 065
     Dates: start: 20210618, end: 20210624
  4. PREDNISOLONE [Concomitant]
     Active Substance: PREDNISOLONE
     Dosage: 4.5 MG
     Route: 065
     Dates: start: 20210625, end: 20210701
  5. PREDNISOLONE [Concomitant]
     Active Substance: PREDNISOLONE
     Dosage: 3 MG
     Route: 065
     Dates: start: 20210702, end: 20210708
  6. PREDNISOLONE [Concomitant]
     Active Substance: PREDNISOLONE
     Dosage: 1.5 MG
     Route: 065
     Dates: start: 20210709, end: 20210723
  7. FAMOTIDINE [Concomitant]
     Active Substance: FAMOTIDINE
     Indication: Product used for unknown indication
     Dosage: (2ML 8MLS/HR, 4 MG, IVPB, BID)
     Route: 042
     Dates: start: 20210904
  8. CEFTRIAXONE [Concomitant]
     Active Substance: CEFTRIAXONE
     Indication: Product used for unknown indication
     Dosage: 680 MG, Q24H (ROUTE: IVPB)
     Route: 042
     Dates: start: 20210904
  9. FENTANYL [Concomitant]
     Active Substance: FENTANYL
     Indication: Product used for unknown indication
     Dosage: (30 ML 0 MLS/HR, 250MCG, 25 ML,QOM)
     Route: 042
     Dates: start: 20210904
  10. SODIUM CHLORIDE [Concomitant]
     Active Substance: SODIUM CHLORIDE
     Indication: Product used for unknown indication
     Dosage: (50ML 0 MLS/HR, 50 ML, 1 SYRINGE, IV, QOM PRN)
     Route: 042
     Dates: start: 20210904
  11. SODIUM CHLORIDE [Concomitant]
     Active Substance: SODIUM CHLORIDE
     Dosage: 4 ML (ROUTE: FLUSH), QSHIFT AS DIRECTED PRN
     Route: 065
  12. LACTULOSE [Concomitant]
     Active Substance: LACTULOSE
     Indication: Product used for unknown indication
     Dosage: 3 ML, BID (ROUTE G TUBE)
     Route: 065
     Dates: start: 20210904
  13. DEXAMETHASONE SODIUM PHOSPHATE [Concomitant]
     Active Substance: DEXAMETHASONE SODIUM PHOSPHATE
     Indication: Product used for unknown indication
     Dosage: 2 MG, Q24H (ROUTE: IVP)
     Route: 065
     Dates: start: 20210904
  14. ALBUTEROL SULFATE [Concomitant]
     Active Substance: ALBUTEROL SULFATE
     Indication: Product used for unknown indication
     Dosage: 2.5 MG, RESP.Q4HR (ROUTE: NEB)
     Route: 065
     Dates: start: 20210905
  15. ACETAMINOPHEN [Concomitant]
     Active Substance: ACETAMINOPHEN
     Indication: Product used for unknown indication
     Dosage: 135 MG, Q4HR PRN (ROUTE: G TUBE)
     Route: 065
     Dates: start: 20210903
  16. MORPHINE SULFATE [Concomitant]
     Active Substance: MORPHINE SULFATE
     Indication: Product used for unknown indication
     Dosage: 0.5 MG, Q4H PRN (ROUTE: IVP)
     Route: 065
     Dates: start: 20210903
  17. FENTANYL CITRATE [Concomitant]
     Active Substance: FENTANYL CITRATE
     Indication: Product used for unknown indication
     Dosage: 10 MCG, Q1H PRN (ROUTE: IVP)
     Route: 065
  18. VECURONIUM BROMIDE [Concomitant]
     Active Substance: VECURONIUM BROMIDE
     Indication: Product used for unknown indication
     Dosage: 1 MG, Q1H PRN (ROUTE: IVP)
     Route: 065
  19. LORAZEPAM [Concomitant]
     Active Substance: LORAZEPAM
     Indication: Product used for unknown indication
     Dosage: 0.5 MG, Q3H PRN (ROUTE: IVP), 0.05 MG/KG
     Route: 065
     Dates: start: 20210903

REACTIONS (29)
  - Coronavirus infection [Recovered/Resolved with Sequelae]
  - Muscular weakness [Recovered/Resolved]
  - Pneumonia [Recovered/Resolved with Sequelae]
  - Pulmonary congestion [Not Recovered/Not Resolved]
  - Aspartate aminotransferase increased [Recovered/Resolved]
  - Aspartate aminotransferase increased [Recovered/Resolved]
  - Alanine aminotransferase increased [Recovered/Resolved]
  - Alanine aminotransferase increased [Recovered/Resolved]
  - White blood cell count decreased [Not Recovered/Not Resolved]
  - Tachycardia [Unknown]
  - Pyrexia [Unknown]
  - Hyperchloraemia [Recovered/Resolved]
  - Prothrombin time prolonged [Recovered/Resolved]
  - Thrombocytosis [Recovered/Resolved]
  - Moebius II syndrome [Unknown]
  - Plagiocephaly [Unknown]
  - Oxygen saturation decreased [Unknown]
  - Hypercalcaemia [Not Recovered/Not Resolved]
  - Hyperglycaemia [Not Recovered/Not Resolved]
  - Anaemia [Not Recovered/Not Resolved]
  - Hyponatraemia [Not Recovered/Not Resolved]
  - Red blood cell count decreased [Not Recovered/Not Resolved]
  - Lymphocyte count decreased [Not Recovered/Not Resolved]
  - PCO2 abnormal [Not Recovered/Not Resolved]
  - PO2 abnormal [Not Recovered/Not Resolved]
  - Haematocrit decreased [Not Recovered/Not Resolved]
  - C-reactive protein increased [Not Recovered/Not Resolved]
  - Cough [Unknown]
  - Dyspnoea [Unknown]

NARRATIVE: CASE EVENT DATE: 20210617
